FAERS Safety Report 15289559 (Version 2)
Quarter: 2018Q3

REPORT INFORMATION
  Report Type: Report from Study
  Country: US (occurrence: US)
  Receive Date: 20180817
  Receipt Date: 20180904
  Transmission Date: 20181010
  Serious: Yes (Death)
  Sender: FDA-Public Use
  Company Number: US-PFIZER INC-2018331596

PATIENT
  Age: 47 Year
  Sex: Female

DRUGS (1)
  1. DOXEPIN HCL [Suspect]
     Active Substance: DOXEPIN HYDROCHLORIDE
     Dosage: UNK

REACTIONS (18)
  - Toxicity to various agents [Fatal]
  - Depressed level of consciousness [Fatal]
  - Hyperthermia [Fatal]
  - Myocardial ischaemia [Fatal]
  - Myocardial infarction [Fatal]
  - Metabolic acidosis [Fatal]
  - Electrocardiogram QRS complex prolonged [Fatal]
  - Haemolysis [Fatal]
  - Leukocytosis [Fatal]
  - Hypotension [Fatal]
  - Coagulopathy [Fatal]
  - Acute kidney injury [Fatal]
  - Respiratory depression [Fatal]
  - Rhabdomyolysis [Fatal]
  - Tachycardia [Fatal]
  - Bradypnoea [Fatal]
  - Arrhythmia [Fatal]
  - Coma [Fatal]
